FAERS Safety Report 4486422-1 (Version None)
Quarter: 2004Q4

REPORT INFORMATION
  Report Type: 
  Country: None (occurrence: None)
  Receive Date: 20041026
  Receipt Date: 20041026
  Transmission Date: 20050328
  Serious: Yes (Life-Threatening)
  Sender: FDA-Public Use
  Company Number: None

PATIENT
  Sex: Male
  Weight: 81.6475 kg

DRUGS (2)
  1. ZOLOFT [Suspect]
     Dosage: 25 MG PO QAM
     Route: 048
     Dates: start: 20040923, end: 20040927
  2. WELLBUTRIN XL [Concomitant]

REACTIONS (1)
  - SUICIDAL IDEATION [None]
